FAERS Safety Report 10461376 (Version 1)
Quarter: 2014Q3

REPORT INFORMATION
  Report Type: Spontaneous
  Country: GB (occurrence: None)
  Receive Date: 20140916
  Receipt Date: 20140916
  Transmission Date: 20150326
  Serious: Yes (Other)
  Sender: FDA-Public Use
  Company Number: 2014ECL00010

PATIENT
  Age: 35 Year
  Sex: Female

DRUGS (6)
  1. BUPIVACAINE (BUPIVACAINE) INJECTION [Concomitant]
     Active Substance: BUPIVACAINE
  2. PHENYLEPHRINE [Suspect]
     Active Substance: PHENYLEPHRINE\PHENYLEPHRINE HYDROCHLORIDE
     Indication: SPINAL ANAESTHESIA
     Dosage: 67 UG, CONTINUOUS/MIN, INTRAVENOUS
     Route: 042
  3. ONDANSETRON. [Suspect]
     Active Substance: ONDANSETRON
     Dosage: 4 MG, ONCE, INTRAVENOUS
     Route: 042
  4. PHENYLEPHRINE [Suspect]
     Active Substance: PHENYLEPHRINE\PHENYLEPHRINE HYDROCHLORIDE
     Dosage: 67 UG, CONTINUOUS/MIN, INTRAVENOUS
     Route: 042
  5. CEFUROXIME (CEFUROXIME) [Concomitant]
     Active Substance: CEFUROXIME
  6. DIAMORPHINE (DIAMORPHINE) [Concomitant]
     Active Substance: DIACETYLMORPHINE

REACTIONS (3)
  - Blood pressure systolic decreased [None]
  - Sudden cardiac death [None]
  - Ventricular tachycardia [None]
